FAERS Safety Report 6198668-5 (Version None)
Quarter: 2009Q2

REPORT INFORMATION
  Report Type: 
  Country: None (occurrence: None)
  Receive Date: 20090521
  Receipt Date: 20090516
  Transmission Date: 20091009
  Serious: No
  Sender: FDA-Public Use
  Company Number: US-B.I. PHARMACEUTICALS,INC./RIDGEFIELD-2009-BP-06158BP

PATIENT
  Age: 65 Year
  Sex: Female

DRUGS (2)
  1. ZANTAC 75 [Suspect]
     Indication: DYSPEPSIA
     Dosage: 150MG
     Route: 048
  2. NITROGLYCERIN [Concomitant]
     Indication: ANGINA PECTORIS
     Route: 048

REACTIONS (1)
  - ANGINA PECTORIS [None]
